FAERS Safety Report 5672192-8 (Version None)
Quarter: 2008Q1

REPORT INFORMATION
  Report Type: 
  Country: None (occurrence: None)
  Receive Date: 20080319
  Receipt Date: 20080307
  Transmission Date: 20080703
  Serious: Yes (Life-Threatening, Hospitalization, Other)
  Sender: FDA-Public Use
  Company Number: US-ROCHE-537350

PATIENT
  Age: 47 Year
  Sex: Female

DRUGS (8)
  1. PEG-INTERFERON A-2A (RO 25-8310) [Suspect]
     Indication: HEPATITIS C
     Route: 058
     Dates: start: 20071003, end: 20080129
  2. PEG-INTERFERON A-2A (RO 25-8310) [Suspect]
     Route: 058
     Dates: end: 20080202
  3. RIBAVIRIN [Suspect]
     Indication: HEPATITIS C
     Route: 048
     Dates: start: 20071003, end: 20080129
  4. RIBAVIRIN [Suspect]
     Route: 048
     Dates: end: 20080203
  5. RIBAVIRIN [Suspect]
     Route: 065
  6. M.V.I. [Concomitant]
  7. VITAMIN E [Concomitant]
  8. VIT D [Concomitant]

REACTIONS (2)
  - THROMBOCYTOPENIA [None]
  - WHITE BLOOD CELL COUNT DECREASED [None]
